FAERS Safety Report 6239321-9 (Version None)
Quarter: 2009Q2

REPORT INFORMATION
  Report Type: 
  Country: None (occurrence: None)
  Receive Date: 20090622
  Receipt Date: 20090617
  Transmission Date: 20091009
  Serious: Yes (Death, Other)
  Sender: FDA-Public Use
  Company Number: PHHY2008BR15510

PATIENT
  Sex: Male

DRUGS (7)
  1. FORASEQ [Suspect]
     Indication: DYSPNOEA
  2. FORASEQ [Suspect]
     Indication: BRONCHITIS
  3. AAS [Concomitant]
  4. MAREVAN [Concomitant]
  5. DIURETICS [Concomitant]
  6. MONOCORDIL [Concomitant]
     Indication: CARDIAC DISORDER
  7. MONOCORDIL [Concomitant]
     Indication: BLOOD PRESSURE ABNORMAL

REACTIONS (7)
  - ANOREXIA [None]
  - CARDIAC FAILURE [None]
  - CARDIAC FUNCTION DISTURBANCE POSTOPERATIVE [None]
  - CARDIAC OPERATION [None]
  - CARDIOMEGALY [None]
  - COLLAPSE OF LUNG [None]
  - GENERAL PHYSICAL HEALTH DETERIORATION [None]
